FAERS Safety Report 16736612 (Version 7)
Quarter: 2021Q2

REPORT INFORMATION
  Report Type: Spontaneous
  Country: US (occurrence: US)
  Receive Date: 20190823
  Receipt Date: 20210511
  Transmission Date: 20210716
  Serious: Yes (Hospitalization, Other)
  Sender: FDA-Public Use
  Company Number: US-BIOCODEX SA-201900782

PATIENT

DRUGS (9)
  1. DIACOMIT [Suspect]
     Active Substance: STIRIPENTOL
     Dosage: TWO SACHETS OF 250MG TWICE DAILY
     Route: 065
  2. LEVOCARNITINE. [Concomitant]
     Active Substance: LEVOCARNITINE
     Indication: PRODUCT USED FOR UNKNOWN INDICATION
     Route: 065
  3. EPIDIOLEX [Concomitant]
     Active Substance: CANNABIDIOL
     Indication: PRODUCT USED FOR UNKNOWN INDICATION
     Route: 065
  4. DIACOMIT [Suspect]
     Active Substance: STIRIPENTOL
     Indication: SEVERE MYOCLONIC EPILEPSY OF INFANCY
     Dosage: TAKE HALF SACHET (125ML) IN 5 ML OF WATER EVERY MORNING AN 1 SACHET (250ML) IN 10 ML OF WATER EVERY
     Route: 048
     Dates: start: 20190606
  5. DIACOMIT [Suspect]
     Active Substance: STIRIPENTOL
     Dosage: 500 MILLIGRAM EVERY 1 DAY
     Route: 065
  6. DIACOMIT [Suspect]
     Active Substance: STIRIPENTOL
     Dosage: 250MG THREE TIMES DAILY.
     Route: 065
  7. DIACOMIT [Suspect]
     Active Substance: STIRIPENTOL
     Dosage: 250MG TWICE DAILY
     Route: 065
  8. ONFI [Concomitant]
     Active Substance: CLOBAZAM
     Indication: SEVERE MYOCLONIC EPILEPSY OF INFANCY
     Route: 065
  9. DEPAKOTE [Concomitant]
     Active Substance: DIVALPROEX SODIUM
     Indication: PRODUCT USED FOR UNKNOWN INDICATION
     Route: 065

REACTIONS (7)
  - Gait inability [Unknown]
  - Product dose omission issue [Unknown]
  - Seizure [Unknown]
  - Product preparation issue [Unknown]
  - Localised infection [Unknown]
  - Change in seizure presentation [Unknown]
  - Somnolence [Unknown]
